FAERS Safety Report 13153342 (Version 1)
Quarter: 2017Q1

REPORT INFORMATION
  Report Type: Spontaneous
  Country: US (occurrence: US)
  Receive Date: 20170122
  Receipt Date: 20170122
  Transmission Date: 20170428
  Serious: No
  Sender: FDA-Public Use
  Company Number: None

PATIENT
  Age: 29 Year
  Sex: Male
  Weight: 72 kg

DRUGS (2)
  1. VENLAFAXINE [Suspect]
     Active Substance: VENLAFAXINE HYDROCHLORIDE
     Indication: DEPRESSION
     Dosage: ?          QUANTITY:30 CAPSULE(S);?
     Route: 048
     Dates: start: 20161212, end: 20170116
  2. BUPROPION. [Concomitant]
     Active Substance: BUPROPION

REACTIONS (4)
  - Product substitution issue [None]
  - Therapy change [None]
  - Adverse drug reaction [None]
  - Withdrawal syndrome [None]

NARRATIVE: CASE EVENT DATE: 20170117
